FAERS Safety Report 4366433-7 (Version None)
Quarter: 2004Q2

REPORT INFORMATION
  Report Type: 
  Country: None (occurrence: None)
  Receive Date: 20040527
  Receipt Date: 20040322
  Transmission Date: 20050107
  Serious: Yes (Other)
  Sender: FDA-Public Use
  Company Number: US-BRISTOL-MYERS SQUIBB COMPANY-12539250

PATIENT
  Sex: Male

DRUGS (5)
  1. ERBITUX [Suspect]
     Indication: COLON CANCER METASTATIC
     Route: 042
     Dates: start: 20040315, end: 20040315
  2. IRINOTECAN [Concomitant]
     Route: 042
  3. TYLENOL [Concomitant]
     Route: 048
  4. BENADRYL [Concomitant]
     Route: 042
  5. ZOFRAN [Concomitant]
     Route: 042

REACTIONS (2)
  - DERMATITIS ACNEIFORM [None]
  - PRURITUS [None]
